FAERS Safety Report 12425075 (Version 1)
Quarter: 2016Q2

REPORT INFORMATION
  Report Type: Spontaneous
  Country: PE (occurrence: PE)
  Receive Date: 20160601
  Receipt Date: 20160601
  Transmission Date: 20160815
  Serious: Yes (Other)
  Sender: FDA-Public Use
  Company Number: PE-PFIZER INC-2016281600

PATIENT
  Age: 58 Year
  Sex: Female

DRUGS (1)
  1. NORVASC [Suspect]
     Active Substance: AMLODIPINE BESYLATE
     Indication: BLOOD PRESSURE ABNORMAL
     Dosage: 5 MG, UNKNOWN FREQUENCY

REACTIONS (1)
  - Hemiplegia [Unknown]
